FAERS Safety Report 15760852 (Version 1)
Quarter: 2018Q4

REPORT INFORMATION
  Report Type: Spontaneous
  Country: US (occurrence: US)
  Receive Date: 20181226
  Receipt Date: 20181226
  Transmission Date: 20190205
  Serious: Yes (Life-Threatening, Hospitalization)
  Sender: FDA-Public Use
  Company Number: None

PATIENT
  Age: 50 Year
  Sex: Female

DRUGS (1)
  1. AUGMENTIN [Suspect]
     Active Substance: AMOXICILLIN\CLAVULANATE POTASSIUM
     Indication: SINUSITIS
     Route: 048
     Dates: start: 20170522

REACTIONS (8)
  - Marfan^s syndrome [None]
  - Splenic necrosis [None]
  - Blood pressure inadequately controlled [None]
  - Renal impairment [None]
  - Ehlers-Danlos syndrome [None]
  - Inadequate analgesia [None]
  - Artery dissection [None]
  - Hypertension [None]

NARRATIVE: CASE EVENT DATE: 20170602
